FAERS Safety Report 9903663 (Version 3)
Quarter: 2014Q2

REPORT INFORMATION
  Report Type: Report from Study
  Country: DE (occurrence: DE)
  Receive Date: 20140217
  Receipt Date: 20140416
  Transmission Date: 20141212
  Serious: Yes (Disabling)
  Sender: FDA-Public Use
  Company Number: DE-CELGENEUS-062-21880-13104862

PATIENT
  Age: 83 Year
  Sex: Male
  Weight: 62 kg

DRUGS (2)
  1. REVLIMID [Suspect]
     Indication: PLASMA CELL MYELOMA
     Dosage: 25 MILLIGRAM
     Route: 048
     Dates: start: 20130530, end: 20130619
  2. REVLIMID [Suspect]
     Dosage: 15 MILLIGRAM
     Route: 048
     Dates: start: 20130708, end: 20130926

REACTIONS (5)
  - Nerve block [Recovered/Resolved with Sequelae]
  - Cardiovascular disorder [Recovered/Resolved with Sequelae]
  - Vertigo [Not Recovered/Not Resolved]
  - Oropharyngeal pain [Recovered/Resolved]
  - Rash [Recovered/Resolved]
